FAERS Safety Report 6697574-7 (Version None)
Quarter: 2010Q2

REPORT INFORMATION
  Report Type: 
  Country: None (occurrence: None)
  Receive Date: 20100426
  Receipt Date: 20090612
  Transmission Date: 20101027
  Serious: No
  Sender: FDA-Public Use
  Company Number: US-ABBOTT-09P-163-0579660-00

PATIENT
  Sex: Male
  Weight: 74.91 kg

DRUGS (3)
  1. AZMACORT [Suspect]
     Indication: ASTHMA
     Dosage: 2PUFFS BID
     Route: 055
     Dates: start: 19990101
  2. VENTOLIN [Concomitant]
     Indication: ASTHMA
     Route: 055
  3. FLONASE [Concomitant]
     Indication: SEASONAL ALLERGY
     Route: 045

REACTIONS (2)
  - DYSPNOEA [None]
  - INCORRECT DOSE ADMINISTERED [None]
